FAERS Safety Report 14995732 (Version 1)
Quarter: 2018Q3

REPORT INFORMATION
  Report Type: Spontaneous
  Country: None (occurrence: US)
  Receive Date: 20180611
  Receipt Date: 20180611
  Transmission Date: 20181010
  Serious: No
  Sender: FDA-Public Use
  Company Number: US-X-GEN PHARMACEUTICALS, INC-2049237

PATIENT
  Age: 62 Year
  Sex: Female
  Weight: 86.36 kg

DRUGS (1)
  1. STREPTOMYCIN [Suspect]
     Active Substance: STREPTOMYCIN\STREPTOMYCIN SULFATE

REACTIONS (4)
  - Upper respiratory tract infection [None]
  - Drug hypersensitivity [Unknown]
  - Pneumonia [None]
  - Therapy cessation [None]
